FAERS Safety Report 9374678 (Version 1)
Quarter: 2013Q2

REPORT INFORMATION
  Report Type: Spontaneous
  Country: US (occurrence: US)
  Receive Date: 20130628
  Receipt Date: 20130628
  Transmission Date: 20140414
  Serious: Yes (Hospitalization)
  Sender: FDA-Public Use
  Company Number: US-BAYER-2013-079536

PATIENT
  Age: 19 Year
  Sex: Female

DRUGS (4)
  1. YASMIN [Suspect]
  2. TUMS [CALCIUM CARBONATE] [Concomitant]
  3. PREVACID [Concomitant]
     Dosage: 30 MG, DAILY
  4. KEFLEX [Concomitant]

REACTIONS (3)
  - Portal vein thrombosis [None]
  - Splenic vein thrombosis [None]
  - Mesenteric vein thrombosis [None]
